FAERS Safety Report 5715290-2 (Version None)
Quarter: 2008Q2

REPORT INFORMATION
  Report Type: 
  Country: None (occurrence: None)
  Receive Date: 20080423
  Receipt Date: 20080416
  Transmission Date: 20081010
  Serious: Yes (Hospitalization)
  Sender: FDA-Public Use
  Company Number: DE-PFIZER INC-2008025324

PATIENT
  Sex: Female
  Weight: 52 kg

DRUGS (1)
  1. SU-011,248 [Suspect]
     Indication: METASTATIC GASTRIC CANCER
     Route: 048
     Dates: start: 20080107, end: 20080316

REACTIONS (5)
  - CHOLESTASIS [None]
  - HAEMOGLOBIN DECREASED [None]
  - INFECTION [None]
  - TRANSAMINASES INCREASED [None]
  - VOMITING [None]
